FAERS Safety Report 4459097-5 (Version None)
Quarter: 2004Q3

REPORT INFORMATION
  Report Type: 
  Country: None (occurrence: None)
  Receive Date: 20040927
  Receipt Date: 20040917
  Transmission Date: 20050211
  Serious: Yes (Death)
  Sender: FDA-Public Use
  Company Number: US-JNJFOC-20040906186

PATIENT
  Age: 64 Year
  Sex: Female

DRUGS (4)
  1. DURAGESIC [Suspect]
     Indication: DRUG USE FOR UNKNOWN INDICATION
     Route: 062
  2. BENADRYL [Concomitant]
     Indication: DRUG USE FOR UNKNOWN INDICATION
  3. CELEXA [Concomitant]
     Indication: DRUG USE FOR UNKNOWN INDICATION
  4. PHENERGAN HCL [Concomitant]
     Indication: DRUG USE FOR UNKNOWN INDICATION

REACTIONS (1)
  - DEATH [None]
